FAERS Safety Report 6175820-6 (Version None)
Quarter: 2009Q2

REPORT INFORMATION
  Report Type: 
  Country: None (occurrence: None)
  Receive Date: 20090501
  Receipt Date: 20090424
  Transmission Date: 20091009
  Serious: Yes (Hospitalization, Disabling)
  Sender: FDA-Public Use
  Company Number: US-BIOGENIDEC-2009BI012753

PATIENT
  Age: 65 Year
  Sex: Female

DRUGS (9)
  1. TYSABRI [Suspect]
     Indication: MULTIPLE SCLEROSIS
     Route: 042
     Dates: start: 20080311
  2. BACLOFEN [Concomitant]
  3. DITROPAN XL [Concomitant]
  4. BONIVA [Concomitant]
  5. NORVASC [Concomitant]
  6. LOTENSIN [Concomitant]
  7. ADVIL [Concomitant]
  8. JANUVIA [Concomitant]
  9. METFORMIN HCL [Concomitant]

REACTIONS (1)
  - PSEUDARTHROSIS [None]
